FAERS Safety Report 9345654 (Version 1)
Quarter: 2013Q2

REPORT INFORMATION
  Report Type: Spontaneous
  Country: CA (occurrence: CA)
  Receive Date: 20130613
  Receipt Date: 20130613
  Transmission Date: 20140414
  Serious: Yes (Death, Other)
  Sender: FDA-Public Use
  Company Number: CA-ROCHE-1235153

PATIENT
  Age: 57 Year
  Sex: Male

DRUGS (2)
  1. PEGASYS [Suspect]
     Indication: HEPATITIS C
     Route: 058
     Dates: start: 20120622, end: 2013
  2. COPEGUS [Suspect]
     Indication: HEPATITIS C
     Route: 048
     Dates: start: 20120622, end: 2013

REACTIONS (5)
  - Myocardial infarction [Fatal]
  - Cardiac arrest [Fatal]
  - Drug ineffective [Unknown]
  - Renal failure [Unknown]
  - Hepatic failure [Unknown]
